FAERS Safety Report 5670770-3 (Version None)
Quarter: 2008Q2

REPORT INFORMATION
  Report Type: 
  Country: None (occurrence: None)
  Receive Date: 20080305
  Receipt Date: 20070625
  Transmission Date: 20081010
  Serious: Yes (Other)
  Sender: FDA-Public Use
  Company Number: BDI-009777

PATIENT
  Sex: Female

DRUGS (3)
  1. ISOVUE-300 [Suspect]
     Indication: COMPUTERISED TOMOGRAM
     Dosage: ONCE INTRAVENOUS
     Route: 042
     Dates: start: 20070618, end: 20070618
  2. BENADRYL [Concomitant]
  3. PREDNISONE 50MG TAB [Concomitant]

REACTIONS (1)
  - ANAPHYLACTIC REACTION [None]
